FAERS Safety Report 20798417 (Version 1)
Quarter: 2022Q2

REPORT INFORMATION
  Report Type: Spontaneous
  Country: CA (occurrence: CA)
  Receive Date: 20220507
  Receipt Date: 20220507
  Transmission Date: 20220721
  Serious: Yes (Hospitalization, Disabling, Other)
  Sender: FDA-Public Use
  Company Number: CA-TEVA-2021-CA-1899389

PATIENT
  Age: 41 Year
  Sex: Female
  Weight: 90 kg

DRUGS (122)
  1. ALENDRONATE SODIUM [Suspect]
     Active Substance: ALENDRONATE SODIUM
     Indication: Product used for unknown indication
     Route: 065
  2. CYCLOSPORINE [Suspect]
     Active Substance: CYCLOSPORINE
     Indication: Psoriatic arthropathy
     Route: 065
  3. CYCLOSPORINE [Suspect]
     Active Substance: CYCLOSPORINE
     Route: 065
  4. CYCLOSPORINE [Suspect]
     Active Substance: CYCLOSPORINE
     Route: 065
  5. CYCLOSPORINE [Suspect]
     Active Substance: CYCLOSPORINE
     Route: 065
  6. CYCLOSPORINE [Suspect]
     Active Substance: CYCLOSPORINE
     Route: 065
  7. IBUPROFEN [Suspect]
     Active Substance: IBUPROFEN
     Indication: Product used for unknown indication
     Route: 048
  8. IBUPROFEN [Suspect]
     Active Substance: IBUPROFEN
     Route: 048
  9. IBUPROFEN [Suspect]
     Active Substance: IBUPROFEN
     Route: 048
  10. IBUPROFEN [Suspect]
     Active Substance: IBUPROFEN
     Route: 048
  11. IBUPROFEN [Suspect]
     Active Substance: IBUPROFEN
     Route: 048
  12. LEFLUNOMIDE [Suspect]
     Active Substance: LEFLUNOMIDE
     Indication: Psoriatic arthropathy
     Route: 048
  13. LEFLUNOMIDE [Suspect]
     Active Substance: LEFLUNOMIDE
     Route: 048
  14. METHOTREXATE [Suspect]
     Active Substance: METHOTREXATE
     Indication: Rheumatoid arthritis
     Route: 065
  15. METHOTREXATE [Suspect]
     Active Substance: METHOTREXATE
     Indication: Product used for unknown indication
     Route: 065
  16. METHOTREXATE [Suspect]
     Active Substance: METHOTREXATE
     Route: 065
  17. METHOTREXATE [Suspect]
     Active Substance: METHOTREXATE
     Route: 065
  18. METHOTREXATE [Suspect]
     Active Substance: METHOTREXATE
     Route: 065
  19. METHOTREXATE [Suspect]
     Active Substance: METHOTREXATE
     Route: 065
  20. METHOTREXATE [Suspect]
     Active Substance: METHOTREXATE
     Route: 065
  21. METHOTREXATE [Suspect]
     Active Substance: METHOTREXATE
     Route: 065
  22. METHOTREXATE [Suspect]
     Active Substance: METHOTREXATE
     Route: 058
  23. METHOTREXATE [Suspect]
     Active Substance: METHOTREXATE
     Route: 058
  24. METHOTREXATE [Suspect]
     Active Substance: METHOTREXATE
     Route: 058
  25. METHOTREXATE [Suspect]
     Active Substance: METHOTREXATE
     Route: 058
  26. CODEINE [Suspect]
     Active Substance: CODEINE
     Indication: Product used for unknown indication
     Route: 065
  27. ABATACEPT [Suspect]
     Active Substance: ABATACEPT
     Indication: Psoriatic arthropathy
     Route: 065
  28. ACTEMRA [Suspect]
     Active Substance: TOCILIZUMAB
     Indication: Rheumatoid arthritis
     Route: 065
  29. ACTEMRA [Suspect]
     Active Substance: TOCILIZUMAB
     Route: 065
  30. ACTEMRA [Suspect]
     Active Substance: TOCILIZUMAB
     Route: 065
  31. ADALIMUMAB [Suspect]
     Active Substance: ADALIMUMAB
     Indication: Psoriatic arthropathy
     Route: 058
  32. CYCLOSPORINE [Suspect]
     Active Substance: CYCLOSPORINE
     Indication: Product used for unknown indication
     Route: 065
  33. CYCLOSPORINE [Suspect]
     Active Substance: CYCLOSPORINE
     Route: 048
  34. IBUPROFEN [Suspect]
     Active Substance: IBUPROFEN
     Indication: Product used for unknown indication
     Route: 048
  35. LEFLUNOMIDE [Suspect]
     Active Substance: LEFLUNOMIDE
     Indication: Product used for unknown indication
     Route: 048
  36. LEFLUNOMIDE [Suspect]
     Active Substance: LEFLUNOMIDE
     Route: 065
  37. APREMILAST [Suspect]
     Active Substance: APREMILAST
     Indication: Rheumatoid arthritis
     Route: 048
  38. APREMILAST [Suspect]
     Active Substance: APREMILAST
     Indication: Psychotic disorder
     Route: 065
  39. APREMILAST [Suspect]
     Active Substance: APREMILAST
     Route: 065
  40. ARAVA [Suspect]
     Active Substance: LEFLUNOMIDE
     Indication: Rheumatoid arthritis
     Dosage: 20 MILLIGRAM DAILY;
     Route: 048
  41. BENADRYL [Suspect]
     Active Substance: DIPHENHYDRAMINE HYDROCHLORIDE
     Indication: Product used for unknown indication
     Route: 065
  42. CELEBREX [Suspect]
     Active Substance: CELECOXIB
     Indication: Adenomatous polyposis coli
     Route: 048
  43. CYCLOSPORINE [Suspect]
     Active Substance: CYCLOSPORINE
     Indication: Psoriatic arthropathy
     Route: 048
  44. CYCLOSPORINE [Suspect]
     Active Substance: CYCLOSPORINE
     Route: 048
  45. CYCLOSPORINE [Suspect]
     Active Substance: CYCLOSPORINE
     Route: 048
  46. CIMZIA [Suspect]
     Active Substance: CERTOLIZUMAB PEGOL
     Indication: Psoriatic arthropathy
     Route: 058
  47. CIMZIA [Suspect]
     Active Substance: CERTOLIZUMAB PEGOL
     Route: 058
  48. CIMZIA [Suspect]
     Active Substance: CERTOLIZUMAB PEGOL
     Route: 065
  49. COSENTYX [Suspect]
     Active Substance: SECUKINUMAB
     Indication: Psoriatic arthropathy
     Route: 065
  50. COSENTYX [Suspect]
     Active Substance: SECUKINUMAB
     Route: 058
  51. ENBREL [Suspect]
     Active Substance: ETANERCEPT
     Indication: Rheumatoid arthritis
     Route: 058
  52. ENBREL [Suspect]
     Active Substance: ETANERCEPT
     Indication: Psoriatic arthropathy
     Route: 065
  53. ENBREL [Suspect]
     Active Substance: ETANERCEPT
     Indication: Psoriasis
     Route: 058
  54. ENBREL [Suspect]
     Active Substance: ETANERCEPT
     Route: 065
  55. ENBREL [Suspect]
     Active Substance: ETANERCEPT
     Route: 058
  56. ENBREL [Suspect]
     Active Substance: ETANERCEPT
     Route: 065
  57. ENBREL [Suspect]
     Active Substance: ETANERCEPT
     Dosage: 20 MILLIGRAM DAILY;
     Route: 065
  58. ETANERCEPT [Suspect]
     Active Substance: ETANERCEPT
     Indication: Rheumatoid arthritis
     Route: 065
  59. ETANERCEPT [Suspect]
     Active Substance: ETANERCEPT
     Indication: Psoriasis
     Route: 065
  60. ETANERCEPT [Suspect]
     Active Substance: ETANERCEPT
     Indication: Psoriatic arthropathy
     Route: 065
  61. HUMIRA [Suspect]
     Active Substance: ADALIMUMAB
     Indication: Rheumatoid arthritis
     Route: 058
  62. HUMIRA [Suspect]
     Active Substance: ADALIMUMAB
     Indication: Psoriatic arthropathy
     Route: 058
  63. HUMIRA [Suspect]
     Active Substance: ADALIMUMAB
     Route: 058
  64. HUMIRA [Suspect]
     Active Substance: ADALIMUMAB
     Route: 058
  65. HYDROXYCHLOROQUINE [Suspect]
     Active Substance: HYDROXYCHLOROQUINE
     Indication: Rheumatoid arthritis
     Route: 065
  66. HYDROXYCHLOROQUINE [Suspect]
     Active Substance: HYDROXYCHLOROQUINE
     Route: 065
  67. INFLIXIMAB [Suspect]
     Active Substance: INFLIXIMAB
     Indication: Psoriatic arthropathy
     Route: 042
  68. INFLIXIMAB [Suspect]
     Active Substance: INFLIXIMAB
     Route: 065
  69. INFLIXIMAB [Suspect]
     Active Substance: INFLIXIMAB
     Route: 048
  70. METHOTREXATE [Suspect]
     Active Substance: METHOTREXATE
     Indication: Rheumatoid arthritis
     Route: 048
  71. METHOTREXATE [Suspect]
     Active Substance: METHOTREXATE
     Route: 048
  72. METHOTREXATE [Suspect]
     Active Substance: METHOTREXATE
     Route: 048
  73. METHOTREXATE [Suspect]
     Active Substance: METHOTREXATE
     Dosage: 7.5 MILLIGRAM DAILY;
     Route: 048
  74. METHOTREXATE [Suspect]
     Active Substance: METHOTREXATE
     Route: 048
  75. MOTRIN [Suspect]
     Active Substance: IBUPROFEN
     Indication: Product used for unknown indication
     Route: 048
  76. MOTRIN [Suspect]
     Active Substance: IBUPROFEN
     Dosage: 6 DOSAGE FORMS DAILY;
     Route: 065
  77. MOTRIN [Suspect]
     Active Substance: IBUPROFEN
     Dosage: 600 MILLIGRAM DAILY;
     Route: 048
  78. MOTRIN [Suspect]
     Active Substance: IBUPROFEN
     Route: 048
  79. MOTRIN [Suspect]
     Active Substance: IBUPROFEN
     Route: 048
  80. ORENCIA [Suspect]
     Active Substance: ABATACEPT
     Indication: Rheumatoid arthritis
     Route: 065
  81. ORENCIA [Suspect]
     Active Substance: ABATACEPT
     Indication: Psoriatic arthropathy
     Route: 058
  82. OTEZLA [Suspect]
     Active Substance: APREMILAST
     Indication: Psoriasis
     Route: 065
  83. OTEZLA [Suspect]
     Active Substance: APREMILAST
     Indication: Psoriatic arthropathy
     Route: 048
  84. OTEZLA [Suspect]
     Active Substance: APREMILAST
     Indication: Rheumatoid arthritis
     Route: 048
  85. PLAQUENIL [Suspect]
     Active Substance: HYDROXYCHLOROQUINE SULFATE
     Indication: Product used for unknown indication
     Route: 065
  86. REMICADE [Suspect]
     Active Substance: INFLIXIMAB
     Indication: Product used for unknown indication
     Route: 042
  87. REMICADE [Suspect]
     Active Substance: INFLIXIMAB
     Route: 041
  88. RITUXAN [Suspect]
     Active Substance: RITUXIMAB
     Indication: Rheumatoid arthritis
     Route: 042
  89. RITUXIMAB [Suspect]
     Active Substance: RITUXIMAB
     Indication: Psoriatic arthropathy
     Route: 065
  90. SIMPONI [Suspect]
     Active Substance: GOLIMUMAB
     Indication: Psoriatic arthropathy
     Route: 058
  91. SIMPONI [Suspect]
     Active Substance: GOLIMUMAB
     Route: 058
  92. SIMPONI [Suspect]
     Active Substance: GOLIMUMAB
     Route: 065
  93. SIMPONI [Suspect]
     Active Substance: GOLIMUMAB
     Route: 058
  94. STELARA [Suspect]
     Active Substance: USTEKINUMAB
     Indication: Psoriatic arthropathy
     Route: 065
  95. STELARA [Suspect]
     Active Substance: USTEKINUMAB
     Route: 065
  96. STELARA [Suspect]
     Active Substance: USTEKINUMAB
     Route: 058
  97. STELARA [Suspect]
     Active Substance: USTEKINUMAB
     Route: 058
  98. STELARA [Suspect]
     Active Substance: USTEKINUMAB
     Route: 058
  99. SULFAMETHOXAZOLE [Suspect]
     Active Substance: SULFAMETHOXAZOLE
     Indication: Product used for unknown indication
     Route: 048
  100. SULFASALAZINE [Suspect]
     Active Substance: SULFASALAZINE
     Indication: Rheumatoid arthritis
     Route: 065
  101. SULFASALAZINE [Suspect]
     Active Substance: SULFASALAZINE
     Indication: Psoriatic arthropathy
     Route: 048
  102. SULFASALAZINE [Suspect]
     Active Substance: SULFASALAZINE
     Route: 065
  103. ACTONEL [Concomitant]
     Active Substance: RISEDRONATE SODIUM
     Route: 065
  104. CANNABIS SATIVA SUBSP. INDICA TOP [Concomitant]
     Active Substance: CANNABIS SATIVA SUBSP. INDICA TOP
     Route: 065
  105. CHOLECALCIFEROL [Concomitant]
     Active Substance: CHOLECALCIFEROL
     Route: 065
  106. COLCHICINE [Concomitant]
     Active Substance: COLCHICINE
     Route: 065
  107. DEXILANT [Concomitant]
     Active Substance: DEXLANSOPRAZOLE
     Route: 065
  108. FEBUXOSTAT [Concomitant]
     Active Substance: FEBUXOSTAT
     Route: 065
  109. FOLIC ACID [Concomitant]
     Active Substance: FOLIC ACID
     Route: 065
  110. FOLIC ACID [Concomitant]
     Active Substance: FOLIC ACID
     Route: 065
  111. GRAVOL [Concomitant]
     Active Substance: DIMENHYDRINATE
     Route: 065
  112. METHOTREXATE [Concomitant]
     Active Substance: METHOTREXATE
     Route: 065
  113. NITRAZEPAM [Concomitant]
     Active Substance: NITRAZEPAM
     Route: 065
  114. NAPROXEN [Concomitant]
     Active Substance: NAPROXEN
     Route: 065
  115. NITRAZEPAM [Concomitant]
     Active Substance: NITRAZEPAM
     Route: 065
  116. OXYCODONE [Concomitant]
     Active Substance: OXYCODONE
     Route: 065
  117. OXYCODONE [Concomitant]
     Active Substance: OXYCODONE
     Route: 065
  118. OXYCODONE [Concomitant]
     Active Substance: OXYCODONE
     Route: 065
  119. PREDNISONE [Concomitant]
     Active Substance: PREDNISONE
     Route: 065
  120. RISEDRONATE SODIUM [Concomitant]
     Active Substance: RISEDRONATE SODIUM
     Route: 065
  121. ULORIC [Concomitant]
     Active Substance: FEBUXOSTAT
     Route: 065
  122. XELJANZ [Concomitant]
     Active Substance: TOFACITINIB CITRATE
     Route: 065

REACTIONS (59)
  - Abdominal discomfort [Unknown]
  - Alanine aminotransferase abnormal [Unknown]
  - Alanine aminotransferase increased [Unknown]
  - Arthralgia [Unknown]
  - Arthritis [Unknown]
  - Arthropathy [Unknown]
  - Aspartate aminotransferase increased [Unknown]
  - Basal cell carcinoma [Unknown]
  - Blood creatinine increased [Unknown]
  - Blood parathyroid hormone decreased [Unknown]
  - Blood pressure systolic increased [Unknown]
  - C-reactive protein abnormal [Unknown]
  - C-reactive protein increased [Unknown]
  - Decreased appetite [Unknown]
  - Diarrhoea [Unknown]
  - Drug eruption [Unknown]
  - Drug hypersensitivity [Unknown]
  - Enthesopathy [Unknown]
  - Erythema [Unknown]
  - Erythema [Unknown]
  - Fatigue [Unknown]
  - Fear of injection [Unknown]
  - General physical health deterioration [Unknown]
  - Granuloma [Unknown]
  - Headache [Unknown]
  - Hypercalcaemia [Unknown]
  - Inflammation [Unknown]
  - Infusion related reaction [Unknown]
  - Insomnia [Unknown]
  - Joint injury [Unknown]
  - Joint swelling [Unknown]
  - Musculoskeletal stiffness [Unknown]
  - Nausea [Unknown]
  - Pain [Unknown]
  - Panniculitis [Unknown]
  - Peripheral swelling [Unknown]
  - Psoriatic arthropathy [Unknown]
  - Rash [Unknown]
  - Rash pruritic [Unknown]
  - Red blood cell sedimentation rate [Unknown]
  - Red blood cell sedimentation rate increased [Unknown]
  - Rheumatoid arthritis [Unknown]
  - Rheumatoid nodule [Unknown]
  - Skin necrosis [Unknown]
  - Skin ulcer [Unknown]
  - Synovitis [Unknown]
  - Tendonitis [Unknown]
  - Tenosynovitis [Unknown]
  - Therapy non-responder [Unknown]
  - Tongue disorder [Unknown]
  - Ulcer [Unknown]
  - Loss of personal independence in daily activities [Unknown]
  - Urticaria [Unknown]
  - Treatment failure [Unknown]
  - Contraindicated product administered [Unknown]
  - Product use issue [Unknown]
  - Drug ineffective [Unknown]
  - Drug intolerance [Unknown]
  - Off label use [Unknown]
